FAERS Safety Report 20439270 (Version 2)
Quarter: 2022Q1

REPORT INFORMATION
  Report Type: Spontaneous
  Country: TW (occurrence: TW)
  Receive Date: 20220207
  Receipt Date: 20220316
  Transmission Date: 20220423
  Serious: Yes (Other)
  Sender: FDA-Public Use
  Company Number: TW-JNJFOC-20220151622

PATIENT
  Age: 62 Year
  Sex: Female
  Weight: 21.792 kg

DRUGS (7)
  1. SIMPONI [Suspect]
     Active Substance: GOLIMUMAB
     Indication: Rheumatoid arthritis
     Dosage: 50MG/0.5ML/VIAL
     Route: 058
     Dates: start: 20210813, end: 20220124
  2. SIMPONI [Suspect]
     Active Substance: GOLIMUMAB
  3. LEFLUNOMIDE [Concomitant]
     Active Substance: LEFLUNOMIDE
     Indication: Rheumatoid arthritis
     Route: 048
     Dates: start: 20210423
  4. CELECOXIB [Concomitant]
     Active Substance: CELECOXIB
     Indication: Rheumatoid arthritis
     Route: 048
     Dates: start: 20210423
  5. HYDROXYCHLOROQUINE SULFATE [Concomitant]
     Active Substance: HYDROXYCHLOROQUINE SULFATE
     Indication: Rheumatoid arthritis
     Route: 048
     Dates: start: 20210423
  6. ENTECAVIR [Concomitant]
     Active Substance: ENTECAVIR
     Indication: Chronic hepatitis B
     Route: 048
     Dates: start: 20210306
  7. UPADACITINIB [Concomitant]
     Active Substance: UPADACITINIB
     Indication: Rheumatoid arthritis
     Route: 048
     Dates: start: 20220125

REACTIONS (3)
  - Red blood cell sedimentation rate increased [Unknown]
  - Drug ineffective [Not Recovered/Not Resolved]
  - Arthralgia [Unknown]

NARRATIVE: CASE EVENT DATE: 20220125
